FAERS Safety Report 19883352 (Version 2)
Quarter: 2022Q2

REPORT INFORMATION
  Report Type: Other
  Country: ES (occurrence: None)
  Receive Date: 20210926
  Receipt Date: 20220506
  Transmission Date: 20220720
  Serious: Yes (Other)
  Sender: FDA-Public Use
  Company Number: ES-MLMSERVICE-20210915-3101181-1

PATIENT
  Age: 80 Year
  Sex: Female

DRUGS (2)
  1. DIAZEPAM [Suspect]
     Active Substance: DIAZEPAM
     Indication: Muscle contracture
     Dosage: (2.5 MG AT BREAKFAST AND DINNER) DIAZEPAM 25 MG WAS PRESCRIBED INSTEAD OF 2.5 MG
     Route: 065
  2. DEXKETOPROFEN [Concomitant]
     Active Substance: DEXKETOPROFEN
     Indication: Muscle contracture

REACTIONS (4)
  - Bradyphrenia [Recovering/Resolving]
  - Somnolence [Recovering/Resolving]
  - Overdose [Unknown]
  - Product prescribing error [Unknown]
